FAERS Safety Report 18961820 (Version 1)
Quarter: 2021Q1

REPORT INFORMATION
  Report Type: Spontaneous
  Country: US (occurrence: US)
  Receive Date: 20210303
  Receipt Date: 20210303
  Transmission Date: 20210420
  Serious: Yes (Other)
  Sender: FDA-Public Use
  Company Number: US-BAYER-2021-081513

PATIENT
  Age: 80 Year
  Sex: Male

DRUGS (1)
  1. MIRALAX [Suspect]
     Active Substance: POLYETHYLENE GLYCOL 3350
     Indication: GASTROINTESTINAL DISORDER
     Dosage: 1 CAP FILLED TO THE INDICATED WHITE LINE IN 8 OUNCES OF WATER
     Route: 048
     Dates: start: 2016

REACTIONS (4)
  - Product prescribing issue [Unknown]
  - Off label use [Unknown]
  - Drug dependence [Unknown]
  - Diarrhoea [Unknown]

NARRATIVE: CASE EVENT DATE: 2016
